FAERS Safety Report 4462168-0 (Version None)
Quarter: 2004Q3

REPORT INFORMATION
  Report Type: 
  Country: None (occurrence: None)
  Receive Date: 20040927
  Receipt Date: 20040915
  Transmission Date: 20050211
  Serious: Yes (Other)
  Sender: FDA-Public Use
  Company Number: 200410334BBE

PATIENT
  Age: 57 Year
  Sex: Female
  Weight: 76 kg

DRUGS (7)
  1. PROLASTIN [Suspect]
     Indication: ALPHA-1 ANTI-TRYPSIN DEFICIENCY
     Dosage: 5000 MG, OW, INTRAVENOUS
     Route: 042
     Dates: start: 20040809
  2. PROLASTIN [Suspect]
     Indication: CONGENITAL ANOMALY
     Dosage: 5000 MG, OW, INTRAVENOUS
     Route: 042
     Dates: start: 20040809
  3. SPIRIVA [Concomitant]
  4. SPIROCORT [Concomitant]
  5. ZARATOR [Concomitant]
  6. ZOLOFT [Concomitant]
  7. HJERTEMAGNYL [Concomitant]

REACTIONS (1)
  - PSORIASIS [None]
